FAERS Safety Report 7557357-2 (Version None)
Quarter: 2011Q2

REPORT INFORMATION
  Report Type: 
  Country: None (occurrence: None)
  Receive Date: 20110620
  Receipt Date: 20110607
  Transmission Date: 20111010
  Serious: Yes (Other)
  Sender: FDA-Public Use
  Company Number: PHHY2011DE51649

PATIENT
  Sex: Female

DRUGS (2)
  1. ZOMETA [Suspect]
     Indication: HEPATIC CANCER METASTATIC
     Dosage: 4 MG/ 5 ML EVERY 4 WEEKS
     Route: 042
     Dates: start: 20100901
  2. NEXAVAR [Concomitant]
     Dosage: 40 MG, DAILY

REACTIONS (3)
  - NEOPLASM PROGRESSION [None]
  - NEOPLASM MALIGNANT [None]
  - OSTEONECROSIS OF JAW [None]
